FAERS Safety Report 9748253 (Version 1)
Quarter: 2013Q4

REPORT INFORMATION
  Report Type: Spontaneous
  Country: US (occurrence: US)
  Receive Date: 20131212
  Receipt Date: 20131212
  Transmission Date: 20140711
  Serious: No
  Sender: FDA-Public Use
  Company Number: US-PFIZER INC-2013353836

PATIENT
  Age: 30 Year
  Sex: Male
  Weight: 90.7 kg

DRUGS (2)
  1. LYRICA [Suspect]
     Indication: PAIN
     Dosage: 150 MG, 3X/DAY
     Dates: start: 2012, end: 201311
  2. TRAMADOL [Concomitant]
     Indication: PAIN
     Dosage: 50 MG, DAILY

REACTIONS (1)
  - Gait disturbance [Unknown]
